FAERS Safety Report 17398214 (Version 2)
Quarter: 2020Q1

REPORT INFORMATION
  Report Type: Spontaneous
  Country: US (occurrence: US)
  Receive Date: 20200210
  Receipt Date: 20200309
  Transmission Date: 20200409
  Serious: Yes (Other)
  Sender: FDA-Public Use
  Company Number: US-VIRTUS PHARMACEUTICALS, LLC-2020VTS00007

PATIENT
  Sex: Male

DRUGS (1)
  1. VIRTUSSIN AC [Suspect]
     Active Substance: CODEINE PHOSPHATE\GUAIFENESIN
     Dosage: 2 ^SPOONS FULL,^ ONCE

REACTIONS (4)
  - Oral discomfort [Unknown]
  - Dyspnoea [Unknown]
  - Abdominal pain upper [Unknown]
  - Throat irritation [Unknown]
